FAERS Safety Report 14127182 (Version 2)
Quarter: 2018Q3

REPORT INFORMATION
  Report Type: Spontaneous
  Country: US (occurrence: US)
  Receive Date: 20171026
  Receipt Date: 20180807
  Transmission Date: 20181010
  Serious: Yes (Hospitalization)
  Sender: FDA-Public Use
  Company Number: US-ASTRAZENECA-2017SF07424

PATIENT
  Sex: Female

DRUGS (16)
  1. XGEVA [Concomitant]
     Active Substance: DENOSUMAB
     Indication: ADJUVANT THERAPY
  2. CALCIUM [Concomitant]
     Active Substance: CALCIUM
  3. MAGNESIUM [Concomitant]
     Active Substance: MAGNESIUM
  4. PERCOCET [Concomitant]
     Active Substance: ACETAMINOPHEN\OXYCODONE HYDROCHLORIDE
     Dosage: 10?325MG
  5. VITAMIN E [Concomitant]
     Active Substance: .ALPHA.-TOCOPHEROL
  6. FASLODEX [Suspect]
     Active Substance: FULVESTRANT
     Indication: ADJUVANT THERAPY
     Dosage: ONCE A MONTH
     Route: 030
  7. PANTOPRAZOLE [Concomitant]
     Active Substance: PANTOPRAZOLE
  8. VITAMIN C [Concomitant]
     Active Substance: ASCORBIC ACID
  9. ATORVASTATIN [Concomitant]
     Active Substance: ATORVASTATIN
  10. IBRANCE [Suspect]
     Active Substance: PALBOCICLIB
     Indication: BONE CANCER
     Dosage: FOR 21 DAYS, OFF 7 DAYS, 100 MG ONCE A DAY
     Route: 048
     Dates: start: 201702
  11. TRAMADOL. [Concomitant]
     Active Substance: TRAMADOL
  12. IBRANCE [Suspect]
     Active Substance: PALBOCICLIB
     Indication: BONE NEOPLASM
     Dosage: 125 MG
     Route: 048
  13. FISH OIL [Concomitant]
     Active Substance: FISH OIL
  14. IBRANCE [Suspect]
     Active Substance: PALBOCICLIB
     Indication: BONE NEOPLASM
     Dosage: FOR 21 DAYS, OFF 7 DAYS, 100 MG ONCE A DAY
     Route: 048
     Dates: start: 201702
  15. IBRANCE [Suspect]
     Active Substance: PALBOCICLIB
     Indication: BONE CANCER
     Dosage: 125 MG
     Route: 048
  16. BISOPROLOL [Concomitant]
     Active Substance: BISOPROLOL

REACTIONS (14)
  - Cancer pain [Not Recovered/Not Resolved]
  - Asthenia [Not Recovered/Not Resolved]
  - Diarrhoea [Unknown]
  - Constipation [Unknown]
  - Blood calcium increased [Not Recovered/Not Resolved]
  - Alopecia [Unknown]
  - Decreased appetite [Unknown]
  - Hot flush [Unknown]
  - Fatigue [Not Recovered/Not Resolved]
  - Liver function test increased [Not Recovered/Not Resolved]
  - Skin exfoliation [Unknown]
  - Skin plaque [Not Recovered/Not Resolved]
  - Nausea [Unknown]
  - Dry skin [Unknown]
